FAERS Safety Report 24532891 (Version 1)
Quarter: 2024Q4

REPORT INFORMATION
  Report Type: Spontaneous
  Country: GB (occurrence: GB)
  Receive Date: 20241022
  Receipt Date: 20241022
  Transmission Date: 20250114
  Serious: Yes (Other)
  Sender: MYLAN
  Company Number: GB-MHRA-31751843

PATIENT
  Age: 78 Year
  Sex: Male

DRUGS (2)
  1. LIPITOR [Suspect]
     Active Substance: ATORVASTATIN CALCIUM
     Indication: Blood cholesterol increased
     Dosage: 10 MILLIGRAM
     Route: 065
     Dates: start: 20101105
  2. VIAGRA [Concomitant]
     Active Substance: SILDENAFIL CITRATE
     Indication: Erectile dysfunction
     Dosage: 25 MILLIGRAM, QD
     Route: 065
     Dates: start: 1999

REACTIONS (3)
  - Sleep apnoea syndrome [Not Recovered/Not Resolved]
  - Headache [Unknown]
  - Tinnitus [Unknown]

NARRATIVE: CASE EVENT DATE: 20120101
